FAERS Safety Report 8084248-3 (Version None)
Quarter: 2012Q1

REPORT INFORMATION
  Report Type: 
  Country: None (occurrence: None)
  Receive Date: 20120128
  Receipt Date: 20110307
  Transmission Date: 20120608
  Serious: No
  Sender: FDA-Public Use
  Company Number: US-ABBOTT-11P-163-0709647-00

PATIENT
  Age: 31 Year
  Sex: Female

DRUGS (3)
  1. HUMIRA [Suspect]
     Indication: PSORIASIS
     Dates: start: 20101105
  2. EFFEXOR [Concomitant]
     Indication: DEPRESSION
  3. PAXIL [Concomitant]
     Indication: DEPRESSION

REACTIONS (1)
  - INJECTION SITE HAEMATOMA [None]
